FAERS Safety Report 4654794-0 (Version None)
Quarter: 2005Q2

REPORT INFORMATION
  Report Type: 
  Country: None (occurrence: None)
  Receive Date: 20050505
  Receipt Date: 20050505
  Transmission Date: 20051028
  Serious: Yes (Life-Threatening, Other)
  Sender: FDA-Public Use
  Company Number: None

PATIENT
  Sex: Female
  Weight: 88.4514 kg

DRUGS (3)
  1. EFFEXOR XR [Suspect]
     Indication: DEPRESSION
     Dosage: 150MG   DAILY    ORAL
     Route: 048
     Dates: start: 20040501, end: 20050504
  2. EFFEXOR XR [Suspect]
     Indication: MENOPAUSE
     Dosage: 150MG   DAILY    ORAL
     Route: 048
     Dates: start: 20040501, end: 20050504
  3. ESTRADIOL [Concomitant]

REACTIONS (7)
  - DEPENDENCE [None]
  - DEPRESSION [None]
  - DRUG WITHDRAWAL SYNDROME [None]
  - HEART RATE IRREGULAR [None]
  - NERVOUS SYSTEM DISORDER [None]
  - SUICIDAL IDEATION [None]
  - SUICIDE ATTEMPT [None]
